FAERS Safety Report 8395265-8 (Version None)
Quarter: 2012Q2

REPORT INFORMATION
  Report Type: 
  Country: None (occurrence: None)
  Receive Date: 20120530
  Receipt Date: 20120525
  Transmission Date: 20120825
  Serious: Yes (Hospitalization)
  Sender: FDA-Public Use
  Company Number: PHHY2012BR045309

PATIENT
  Age: 24 Year
  Sex: Male

DRUGS (1)
  1. VOLTAREN-XR [Suspect]
     Indication: INFLUENZA
     Dosage: 8 DF, BID
     Dates: start: 20120523

REACTIONS (8)
  - VOMITING [None]
  - OVERDOSE [None]
  - ANGINA PECTORIS [None]
  - CONVULSION [None]
  - SALIVARY HYPERSECRETION [None]
  - MALAISE [None]
  - SYNCOPE [None]
  - DIZZINESS [None]
